FAERS Safety Report 12995590 (Version 1)
Quarter: 2016Q4

REPORT INFORMATION
  Report Type: Spontaneous
  Country: US (occurrence: US)
  Receive Date: 20161202
  Receipt Date: 20161202
  Transmission Date: 20170207
  Serious: Yes (Hospitalization, Other)
  Sender: FDA-Public Use
  Company Number: US-GLAXOSMITHKLINE-US2016178115

PATIENT
  Age: 80 Year
  Sex: Female

DRUGS (13)
  1. PERCOCET [Concomitant]
     Active Substance: ACETAMINOPHEN\OXYCODONE HYDROCHLORIDE
  2. OMEPRAZOLE. [Concomitant]
     Active Substance: OMEPRAZOLE
  3. SYNTHROID [Concomitant]
     Active Substance: LEVOTHYROXINE SODIUM
  4. VITAMIN C [Concomitant]
     Active Substance: ASCORBIC ACID
  5. CITRACAL [Concomitant]
     Active Substance: CALCIUM CITRATE
  6. ADVAIR DISKUS [Suspect]
     Active Substance: FLUTICASONE PROPIONATE\SALMETEROL XINAFOATE
     Indication: CHRONIC OBSTRUCTIVE PULMONARY DISEASE
     Dosage: 1 PUFF(S), BID
     Route: 055
     Dates: start: 2013
  7. CELEBREX [Concomitant]
     Active Substance: CELECOXIB
  8. TRAMADOL. [Concomitant]
     Active Substance: TRAMADOL
  9. MIRALAX [Concomitant]
     Active Substance: POLYETHYLENE GLYCOL 3350
  10. BIOTIN [Concomitant]
     Active Substance: BIOTIN
  11. FISH OIL [Concomitant]
     Active Substance: FISH OIL
  12. MAGNESIUM [Concomitant]
     Active Substance: MAGNESIUM
  13. MYRBETRIQ [Concomitant]
     Active Substance: MIRABEGRON

REACTIONS (10)
  - Pain [Not Recovered/Not Resolved]
  - Bone disorder [Unknown]
  - Arthralgia [Unknown]
  - Femur fracture [Unknown]
  - Dyspnoea [Unknown]
  - Fall [Unknown]
  - Device use error [Unknown]
  - Medical device implantation [Unknown]
  - Pain in extremity [Unknown]
  - Limb operation [Unknown]

NARRATIVE: CASE EVENT DATE: 2013
